FAERS Safety Report 18209821 (Version 1)
Quarter: 2020Q3

REPORT INFORMATION
  Report Type: Spontaneous
  Country: US (occurrence: US)
  Receive Date: 20200828
  Receipt Date: 20200828
  Transmission Date: 20201103
  Serious: Yes (Death, Other)
  Sender: FDA-Public Use
  Company Number: US-GILEAD-2020-0492484

PATIENT
  Age: 63 Year
  Sex: Male

DRUGS (8)
  1. REMDESIVIR. [Suspect]
     Active Substance: REMDESIVIR
     Indication: COVID-19
     Route: 065
  2. LOVENOX [Concomitant]
     Active Substance: ENOXAPARIN SODIUM
  3. ZYVOX [Concomitant]
     Active Substance: LINEZOLID
  4. DEXAMETHASONE. [Concomitant]
     Active Substance: DEXAMETHASONE
  5. LINEZOLID. [Concomitant]
     Active Substance: LINEZOLID
  6. CEFEPIME [Concomitant]
     Active Substance: CEFEPIME HYDROCHLORIDE
  7. PLASMA [Concomitant]
     Active Substance: HUMAN PLASMA
  8. TOCILIZUMAB. [Concomitant]
     Active Substance: TOCILIZUMAB

REACTIONS (1)
  - Cardiac arrest [Fatal]

NARRATIVE: CASE EVENT DATE: 20200827
